FAERS Safety Report 21727712 (Version 1)
Quarter: 2022Q4

REPORT INFORMATION
  Report Type: Spontaneous
  Country: CN (occurrence: None)
  Receive Date: 20221214
  Receipt Date: 20221214
  Transmission Date: 20230113
  Serious: Yes (Other)
  Sender: FDA-Public Use
  Company Number: CN-ROCHE-3233684

PATIENT
  Age: 37 Year
  Sex: Female

DRUGS (8)
  1. HERCEPTIN [Suspect]
     Active Substance: TRASTUZUMAB
     Indication: Breast cancer
     Route: 065
  2. DOXORUBICIN HYDROCHLORIDE [Concomitant]
     Active Substance: DOXORUBICIN HYDROCHLORIDE
     Indication: Breast cancer
     Route: 065
     Dates: end: 201912
  3. CYCLOPHOSPHAMIDE [Concomitant]
     Active Substance: CYCLOPHOSPHAMIDE
     Indication: Breast cancer
     Dates: end: 201912
  4. PACLITAXEL [Concomitant]
     Active Substance: PACLITAXEL
     Indication: Breast cancer
     Dates: end: 201912
  5. TAMOXIFEN [Concomitant]
     Active Substance: TAMOXIFEN
     Indication: Breast cancer
  6. LETROZOLE [Concomitant]
     Active Substance: LETROZOLE
  7. PYROTINIB [Concomitant]
     Active Substance: PYROTINIB
     Indication: Breast cancer
     Dosage: PER DAY
  8. ZOLEDRONIC [Concomitant]
     Active Substance: ZOLEDRONIC ACID
     Dosage: 28 DAYS AS A CYCLE
     Dates: start: 20210425

REACTIONS (6)
  - Diarrhoea [Unknown]
  - Asthenia [Unknown]
  - Decreased appetite [Unknown]
  - Drug ineffective [Unknown]
  - Disease progression [Unknown]
  - Respiratory acidosis [Unknown]

NARRATIVE: CASE EVENT DATE: 20220901
